FAERS Safety Report 10042812 (Version 1)
Quarter: 2014Q1

REPORT INFORMATION
  Report Type: Spontaneous
  Country: IN (occurrence: IN)
  Receive Date: 20140327
  Receipt Date: 20140327
  Transmission Date: 20141002
  Serious: Yes (Death, Hospitalization, Other)
  Sender: FDA-Public Use
  Company Number: PHHY2014IN034278

PATIENT
  Age: 25 Year
  Sex: Male

DRUGS (9)
  1. ISONIAZID [Suspect]
     Indication: PULMONARY TUBERCULOSIS
  2. RIFAMPICIN [Suspect]
     Indication: PULMONARY TUBERCULOSIS
  3. ETHAMBUTOL [Suspect]
     Indication: PULMONARY TUBERCULOSIS
     Dosage: 1200 MG, QD
  4. LEVOFLOXACIN [Suspect]
     Indication: TUBERCULOSIS
     Dosage: 1000 MG, QD
  5. PYRAZINAMIDE [Suspect]
     Indication: PULMONARY TUBERCULOSIS
     Dosage: 100 MG, UNK
  6. CYCLOSERINE [Suspect]
     Indication: TUBERCULOSIS
  7. STREPTOMYCIN [Suspect]
     Indication: PULMONARY TUBERCULOSIS
  8. ETHIONAMIDE [Suspect]
     Indication: TUBERCULOSIS
     Dosage: 750 MG, QD
  9. PYRIDOXIN [Suspect]
     Indication: TUBERCULOSIS
     Dosage: 100 MG, QD

REACTIONS (13)
  - Completed suicide [Fatal]
  - Shock haemorrhagic [Fatal]
  - Substance-induced psychotic disorder [Unknown]
  - Insomnia [Unknown]
  - Speech disorder [Unknown]
  - Anxiety [Unknown]
  - Hallucination, visual [Unknown]
  - Pulmonary tuberculosis [Unknown]
  - Pathogen resistance [Unknown]
  - Deafness bilateral [Unknown]
  - Tinnitus [Unknown]
  - Acne [Unknown]
  - Drug ineffective [Unknown]
